FAERS Safety Report 14986965 (Version 1)
Quarter: 2018Q2

REPORT INFORMATION
  Report Type: Spontaneous
  Country: DE (occurrence: DE)
  Receive Date: 20180608
  Receipt Date: 20180608
  Transmission Date: 20180711
  Serious: Yes (Other)
  Sender: FDA-Public Use
  Company Number: DE-BIOGEN-2018BI00591165

PATIENT
  Age: 0 Day
  Sex: Male
  Weight: 2.48 kg

DRUGS (1)
  1. AVONEX [Suspect]
     Active Substance: INTERFERON BETA-1A
     Indication: MULTIPLE SCLEROSIS
     Route: 064
     Dates: start: 20080901, end: 2016

REACTIONS (2)
  - Foetal exposure during pregnancy [Recovered/Resolved]
  - Low birth weight baby [Recovered/Resolved]

NARRATIVE: CASE EVENT DATE: 20170304
